FAERS Safety Report 5871602-0 (Version None)
Quarter: 2008Q3

REPORT INFORMATION
  Report Type: 
  Country: None (occurrence: None)
  Receive Date: 20080905
  Receipt Date: 20080618
  Transmission Date: 20090109
  Serious: No
  Sender: FDA-Public Use
  Company Number: A0734784A

PATIENT
  Age: 64 Year
  Sex: Female
  Weight: 86.2 kg

DRUGS (12)
  1. REQUIP [Suspect]
     Indication: DRUG USE FOR UNKNOWN INDICATION
     Route: 048
     Dates: end: 20071002
  2. CHANTIX [Suspect]
     Route: 048
     Dates: start: 20070710, end: 20071002
  3. AMARYL [Concomitant]
  4. ELAVIL [Concomitant]
  5. GLUCOPHAGE [Concomitant]
  6. ACTOS [Concomitant]
  7. INSULIN [Concomitant]
  8. ZOCOR [Concomitant]
  9. LOZOL [Concomitant]
  10. LISINOPRIL [Concomitant]
  11. NEURONTIN [Concomitant]
  12. DOXEPIN HCL [Concomitant]

REACTIONS (3)
  - EPISTAXIS [None]
  - NASAL SEPTUM DEVIATION [None]
  - STOMACH DISCOMFORT [None]
